FAERS Safety Report 23405819 (Version 5)
Quarter: 2024Q1

REPORT INFORMATION
  Report Type: Report from Study
  Country: CA (occurrence: CA)
  Receive Date: 20240116
  Receipt Date: 20240331
  Transmission Date: 20240410
  Serious: Yes (Other)
  Sender: FDA-Public Use
  Company Number: CA-EXELIXIS-CABO-23060892

PATIENT
  Age: 72 Year
  Sex: Male
  Weight: 83 kg

DRUGS (11)
  1. CABOMETYX [Suspect]
     Active Substance: CABOZANTINIB S-MALATE
     Indication: Hepatocellular carcinoma
     Dosage: 60 MG,QD
     Route: 048
     Dates: start: 20221201, end: 20240312
  2. LEVOTHYROXINE [Concomitant]
     Active Substance: LEVOTHYROXINE\LEVOTHYROXINE SODIUM
     Dosage: 0.112 MG
  3. AMLODIPINE [Concomitant]
     Active Substance: AMLODIPINE BESYLATE
     Dosage: 10 MG
  4. ATENOLOL [Concomitant]
     Active Substance: ATENOLOL
     Dosage: 25 MG
  5. LOMOTIL [Concomitant]
     Active Substance: ATROPINE SULFATE\DIPHENOXYLATE HYDROCHLORIDE
     Dosage: 0.05 MG
  6. PILOCARPINE [Concomitant]
     Active Substance: PILOCARPINE
     Dosage: UNK
  7. PREDNISONE [Concomitant]
     Active Substance: PREDNISONE
     Dosage: UNK
  8. NYSTATIN [Concomitant]
     Active Substance: NYSTATIN
     Dosage: UNK
  9. METOCLOPRAMIDE [Concomitant]
     Active Substance: METOCLOPRAMIDE
     Indication: Nausea
     Dosage: EVERY 4 TO 6 HOURS AS REQUIRED.
  10. METOCLOPRAMIDE [Concomitant]
     Active Substance: METOCLOPRAMIDE
     Indication: Vomiting
  11. LOPERAMIDE [Concomitant]
     Active Substance: LOPERAMIDE
     Dosage: UNK

REACTIONS (17)
  - Lymphadenopathy mediastinal [Unknown]
  - Malignant neoplasm progression [Not Recovered/Not Resolved]
  - Metastases to lung [Unknown]
  - Metastases to liver [Unknown]
  - Chest discomfort [Unknown]
  - Weight increased [Unknown]
  - Pharyngitis [Recovering/Resolving]
  - Anxiety [Unknown]
  - Dysphagia [Unknown]
  - Lethargy [Recovered/Resolved]
  - Haemoptysis [Recovered/Resolved]
  - Oral mucosal erythema [Unknown]
  - Mucosal inflammation [Recovered/Resolved]
  - Decreased appetite [Recovered/Resolved]
  - Stomatitis [Recovering/Resolving]
  - Drug intolerance [Unknown]
  - Off label use [Unknown]

NARRATIVE: CASE EVENT DATE: 20230907
